FAERS Safety Report 7079311-X (Version None)
Quarter: 2010Q4

REPORT INFORMATION
  Report Type: 
  Country: None (occurrence: None)
  Receive Date: 20101102
  Receipt Date: 20090908
  Transmission Date: 20110411
  Serious: Yes (Hospitalization)
  Sender: FDA-Public Use
  Company Number: A0805269A

PATIENT
  Sex: Male

DRUGS (1)
  1. RHYTHMOL [Suspect]

REACTIONS (1)
  - ADVERSE EVENT [None]
